FAERS Safety Report 9455861 (Version 3)
Quarter: 2013Q4

REPORT INFORMATION
  Report Type: Spontaneous
  Country: US (occurrence: US)
  Receive Date: 20130813
  Receipt Date: 20131018
  Transmission Date: 20140711
  Serious: Yes (Other)
  Sender: FDA-Public Use
  Company Number: US-ELI_LILLY_AND_COMPANY-US200904003369

PATIENT
  Age: 66 Year
  Sex: Male

DRUGS (19)
  1. CYMBALTA [Suspect]
     Indication: DEPRESSION
     Dosage: 30 MG, DAILY (1/D)
     Route: 065
     Dates: start: 20090413
  2. CYMBALTA [Suspect]
     Indication: POST-TRAUMATIC STRESS DISORDER
     Dosage: 30 MG, QOD
  3. CYMBALTA [Suspect]
     Indication: OBSESSIVE-COMPULSIVE DISORDER
     Dosage: 30 MG, 2/D
  4. CYMBALTA [Suspect]
     Indication: NIGHTMARE
     Dosage: 60 MG, 2/D
  5. CYMBALTA [Suspect]
     Indication: PANIC ATTACK
     Dosage: 60 MG, BID
     Route: 065
     Dates: start: 20131001
  6. PROZAC [Suspect]
     Indication: OBSESSIVE-COMPULSIVE DISORDER
     Dosage: 80 MG, EACH MORNING
     Route: 065
     Dates: start: 1991
  7. PROZAC [Suspect]
     Indication: POST-TRAUMATIC STRESS DISORDER
  8. PROZAC [Suspect]
     Indication: DEPRESSION
  9. FLUOXETINE HYDROCHLORIDE [Suspect]
     Indication: PRODUCT USED FOR UNKNOWN INDICATION
     Dosage: UNK, UNKNOWN
     Route: 065
  10. XANAX [Concomitant]
     Indication: PANIC ATTACK
     Dosage: UNK, TID
  11. OXYCONTIN [Concomitant]
     Indication: BACK PAIN
     Dosage: 20 MG, OTHER
  12. DIOVAN /01319601/ [Concomitant]
  13. METFORMIN [Concomitant]
     Dosage: 1000 MG, BID
  14. PROCARDIA [Concomitant]
  15. FLOMAX [Concomitant]
     Dosage: 4 MG, BID
  16. HYDROCHLOROTHIAZIDE [Concomitant]
     Dosage: 20 MG, QD
     Route: 065
  17. POTASSIUM [Concomitant]
     Dosage: UNK, UNKNOWN
     Route: 065
  18. COATED ASPIRIN [Concomitant]
     Dosage: UNK, UNKNOWN
     Route: 065
  19. TRAZODONE [Concomitant]
     Indication: SLEEP DISORDER
     Dosage: 50 MG, QD
     Route: 065

REACTIONS (29)
  - Myocardial infarction [Unknown]
  - Thrombosis [Unknown]
  - Hypertension [Unknown]
  - Psychomotor hyperactivity [Recovered/Resolved]
  - Insomnia [Recovered/Resolved]
  - Fatigue [Recovered/Resolved]
  - Feeling cold [Recovered/Resolved]
  - Chills [Recovered/Resolved]
  - Obsessive-compulsive disorder [Unknown]
  - Tendon rupture [Unknown]
  - Abdominal hernia [Unknown]
  - Lymphocyte count increased [Unknown]
  - Diabetes mellitus [Unknown]
  - Impaired healing [Unknown]
  - Muscle contusion [Unknown]
  - Weight decreased [Unknown]
  - Petechiae [Unknown]
  - Depressed mood [Unknown]
  - Abdominal pain upper [Recovered/Resolved]
  - Abdominal distension [Recovered/Resolved]
  - Pain [Recovered/Resolved]
  - Decreased appetite [Unknown]
  - Haemorrhage [Unknown]
  - Back pain [Recovering/Resolving]
  - Drug ineffective [Unknown]
  - Drug ineffective [Recovering/Resolving]
  - Asthenia [Unknown]
  - Headache [Unknown]
  - Feeling abnormal [Unknown]
